FAERS Safety Report 9495460 (Version 2)
Quarter: 2013Q3

REPORT INFORMATION
  Report Type: Spontaneous
  Country: US (occurrence: US)
  Receive Date: 20130903
  Receipt Date: 20130925
  Transmission Date: 20140515
  Serious: Yes (Hospitalization)
  Sender: FDA-Public Use
  Company Number: US-JNJFOC-20130816041

PATIENT
  Sex: Female

DRUGS (2)
  1. REMICADE [Suspect]
     Indication: SARCOIDOSIS
     Route: 042
  2. REMICADE [Suspect]
     Indication: RHEUMATOID ARTHRITIS
     Route: 042

REACTIONS (6)
  - Stupor [Unknown]
  - Antinuclear antibody positive [Unknown]
  - Pyrexia [Unknown]
  - Asthenia [Unknown]
  - Hypercalcaemia [Unknown]
  - Off label use [Unknown]
